FAERS Safety Report 7565592-2 (Version None)
Quarter: 2011Q2

REPORT INFORMATION
  Report Type: 
  Country: None (occurrence: None)
  Receive Date: 20110615
  Receipt Date: 20110602
  Transmission Date: 20111010
  Serious: Yes (Death, Hospitalization, Other)
  Sender: FDA-Public Use
  Company Number: 2011099894

PATIENT
  Age: 47 Year
  Sex: Male
  Weight: 78 kg

DRUGS (7)
  1. DALTEPARIN SODIUM [Suspect]
     Indication: EMBOLISM VENOUS
     Dosage: 15600 IU, SUBCUTANEOUS, 12500 IU, SUBCUTANEOUS
     Route: 058
     Dates: start: 20110218
  2. DALTEPARIN SODIUM [Suspect]
     Indication: EMBOLISM VENOUS
     Dosage: 15600 IU, SUBCUTANEOUS, 12500 IU, SUBCUTANEOUS
     Route: 058
     Dates: start: 20110120, end: 20110217
  3. PARKEMED (MEFENAMIC ACID) [Concomitant]
  4. GLANDOMED (MACROGOL) [Concomitant]
  5. PANTOPRAZOLE SODIUM [Concomitant]
  6. BERODUAL (FENOTEROL HYDROBROMIDE, IPRATROPIUM BROMIDE) [Concomitant]
  7. METOCLOPRAMIDE HYDROCHLORIDE [Concomitant]

REACTIONS (6)
  - BRAIN MIDLINE SHIFT [None]
  - SINUS TACHYCARDIA [None]
  - ISCHAEMIC STROKE [None]
  - FALL [None]
  - BRAIN OEDEMA [None]
  - PYREXIA [None]
